FAERS Safety Report 11265500 (Version 1)
Quarter: 2015Q3

REPORT INFORMATION
  Report Type: Spontaneous
  Country: US (occurrence: None)
  Receive Date: 20150710
  Receipt Date: 20150710
  Transmission Date: 20151125
  Serious: No
  Sender: FDA-Public Use
  Company Number: None

PATIENT
  Age: 40 Year
  Sex: Female
  Weight: 81.65 kg

DRUGS (2)
  1. SUMAVEL BIRTH CONTROL [Concomitant]
  2. SUMAVEL DOSEPRO [Suspect]
     Active Substance: SUMATRIPTAN SUCCINATE
     Indication: MIGRAINE
     Route: 058

REACTIONS (4)
  - Syringe issue [None]
  - Device malfunction [None]
  - Accidental exposure to product [None]
  - Incorrect dose administered [None]

NARRATIVE: CASE EVENT DATE: 20150706
